FAERS Safety Report 7371660-0 (Version None)
Quarter: 2011Q1

REPORT INFORMATION
  Report Type: 
  Country: None (occurrence: None)
  Receive Date: 20110324
  Receipt Date: 20100927
  Transmission Date: 20110831
  Serious: No
  Sender: FDA-Public Use
  Company Number: US-TYCO HEALTHCARE/MALLINCKRODT-T201002068

PATIENT
  Age: 91 Year
  Sex: Male

DRUGS (3)
  1. ACETAMINOPHEN AND HYDROCODONE BITARTRATE [Suspect]
     Dosage: 1 TAB, QD
     Route: 048
     Dates: end: 20100912
  2. ACETAMINOPHEN AND HYDROCODONE BITARTRATE [Suspect]
     Indication: PAIN
     Dosage: 1 TAB QID
     Route: 048
     Dates: start: 20100712
  3. MANGOSTEEN JUICE [Concomitant]

REACTIONS (2)
  - BURNING SENSATION [None]
  - THROAT IRRITATION [None]
